FAERS Safety Report 4647000-4 (Version None)
Quarter: 2005Q2

REPORT INFORMATION
  Report Type: 
  Country: None (occurrence: None)
  Receive Date: 20050331
  Receipt Date: 20050208
  Transmission Date: 20051028
  Serious: No
  Sender: FDA-Public Use
  Company Number: 05P-163-0289868

PATIENT
  Age: 65 Year
  Sex: Female
  Weight: 53.5244 kg

DRUGS (11)
  1. HUMIRA [Suspect]
     Indication: RHEUMATOID ARTHRITIS
     Dosage: 40 MG, 1 IN 2 WK, SUBCUTANEOUS
     Route: 058
     Dates: start: 20050101, end: 20050101
  2. HUMIRA [Suspect]
     Indication: RHEUMATOID ARTHRITIS
     Dosage: 40 MG, 1 IN 2 WK, SUBCUTANEOUS
     Route: 058
     Dates: start: 20050208, end: 20050208
  3. CORTISONE [Concomitant]
  4. ACETAMINOPHEN W/ CODEINE [Concomitant]
  5. PREDNISONE [Concomitant]
  6. ZOLPIDEM TARTRATE [Concomitant]
  7. LOREZAPAM [Concomitant]
  8. HYDROCHLOROTHIAZIDE [Concomitant]
  9. LISINOPRIL [Concomitant]
  10. LANSOPRAZOLE [Concomitant]
  11. SERTRALINE HYDROCHLORIDE [Concomitant]

REACTIONS (2)
  - INJECTION SITE VESICLES [None]
  - SINUSITIS [None]
